FAERS Safety Report 8089886-X (Version None)
Quarter: 2012Q1

REPORT INFORMATION
  Report Type: 
  Country: None (occurrence: None)
  Receive Date: 20120129
  Receipt Date: 20111020
  Transmission Date: 20120608
  Serious: No
  Sender: FDA-Public Use
  Company Number: US-ABBOTT-11P-163-0867225-00

PATIENT
  Age: 43 Year
  Sex: Female

DRUGS (2)
  1. PREDNISONE TAB [Concomitant]
     Indication: PRODUCT USED FOR UNKNOWN INDICATION
  2. HUMIRA [Suspect]
     Indication: PRODUCT USED FOR UNKNOWN INDICATION
     Dates: start: 20110918

REACTIONS (10)
  - PHARYNGEAL OEDEMA [None]
  - OROPHARYNGEAL PAIN [None]
  - DEPRESSION [None]
  - ANXIETY [None]
  - WEIGHT DECREASED [None]
  - SENSATION OF FOREIGN BODY [None]
  - COLITIS ULCERATIVE [None]
  - PAIN [None]
  - CANDIDIASIS [None]
  - FATIGUE [None]
